FAERS Safety Report 8540996-X (Version None)
Quarter: 2012Q3

REPORT INFORMATION
  Report Type: 
  Country: None (occurrence: None)
  Receive Date: 20120726
  Receipt Date: 20110808
  Transmission Date: 20120928
  Serious: No
  Sender: FDA-Public Use
  Company Number: US-ASTRAZENECA-2011SE47324

PATIENT
  Sex: Male

DRUGS (3)
  1. CLONAZEPAM [Concomitant]
     Indication: ANXIETY
  2. SEROQUEL [Suspect]
     Route: 048
  3. REMORAN [Concomitant]
     Indication: ANXIETY

REACTIONS (1)
  - ADVERSE EVENT [None]
